FAERS Safety Report 18202464 (Version 1)
Quarter: 2020Q3

REPORT INFORMATION
  Report Type: Spontaneous
  Country: US (occurrence: US)
  Receive Date: 20200827
  Receipt Date: 20200827
  Transmission Date: 20201103
  Serious: No
  Sender: FDA-Public Use
  Company Number: None

PATIENT
  Age: 69 Year
  Sex: Female
  Weight: 69.3 kg

DRUGS (1)
  1. IBRANCE [Suspect]
     Active Substance: PALBOCICLIB
     Indication: BREAST CANCER METASTATIC
     Dosage: ?          OTHER FREQUENCY:QD X21D, OFF X7D;?
     Route: 048
     Dates: start: 20190417, end: 20200806

REACTIONS (3)
  - Therapy cessation [None]
  - Coombs positive haemolytic anaemia [None]
  - Platelet transfusion [None]

NARRATIVE: CASE EVENT DATE: 20200806
